FAERS Safety Report 7909932-0 (Version None)
Quarter: 2011Q4

REPORT INFORMATION
  Report Type: 
  Country: None (occurrence: None)
  Receive Date: 20111111
  Receipt Date: 20111102
  Transmission Date: 20120403
  Serious: Yes (Hospitalization, Other)
  Sender: FDA-Public Use
  Company Number: US-JNJFOC-20111101214

PATIENT
  Sex: Female
  Weight: 40.8 kg

DRUGS (5)
  1. CONCERTA [Suspect]
     Route: 048
  2. CONCERTA [Suspect]
     Dosage: DOSE TITRATED
     Route: 048
  3. CONCERTA [Suspect]
     Route: 048
     Dates: start: 20111027, end: 20111031
  4. CONCERTA [Suspect]
     Indication: ATTENTION DEFICIT/HYPERACTIVITY DISORDER
     Route: 048
     Dates: start: 20111102
  5. CONCERTA [Suspect]
     Route: 048
     Dates: start: 20110701, end: 20111001

REACTIONS (6)
  - ABNORMAL BEHAVIOUR [None]
  - APPENDICITIS [None]
  - HALLUCINATION, VISUAL [None]
  - HALLUCINATION, AUDITORY [None]
  - EYE DISORDER [None]
  - TIC [None]
